FAERS Safety Report 9538817 (Version 1)
Quarter: 2013Q2

REPORT INFORMATION
  Report Type: Spontaneous
  Country: US (occurrence: None)
  Receive Date: 20130507
  Receipt Date: 20130507
  Transmission Date: 20140414
  Serious: No
  Sender: FDA-Public Use
  Company Number: PHEH2012US025486

PATIENT
  Age: 63 Year
  Sex: Male

DRUGS (1)
  1. AFINITOR (RAD) [Suspect]
     Indication: METASTATIC RENAL CELL CARCINOMA
     Route: 048
     Dates: start: 20120517

REACTIONS (1)
  - Bronchitis chronic [None]
